FAERS Safety Report 4968611-2 (Version None)
Quarter: 2006Q2

REPORT INFORMATION
  Report Type: 
  Country: None (occurrence: None)
  Receive Date: 20060411
  Receipt Date: 20060330
  Transmission Date: 20061013
  Serious: Yes (Hospitalization)
  Sender: FDA-Public Use
  Company Number: 2006PK00634

PATIENT
  Age: 66 Year
  Sex: Male
  Weight: 99.6 kg

DRUGS (9)
  1. SEROQUEL [Interacting]
     Indication: BIPOLAR DISORDER
     Dosage: DAILY DOSE GRADUALLY DECREASED FROM 600 TO 200 MG
     Route: 048
     Dates: start: 20051201, end: 20060101
  2. SEROQUEL [Interacting]
     Dosage: 500 MG WITHIN 48 HOURS
     Route: 048
     Dates: start: 20060122, end: 20060123
  3. SEROQUEL [Interacting]
     Route: 048
     Dates: start: 20060127
  4. DEPAKENE [Interacting]
     Indication: BIPOLAR DISORDER
     Route: 048
     Dates: start: 20020301, end: 20060124
  5. DEPAKENE [Interacting]
     Route: 048
     Dates: start: 20060126
  6. LITHIUM CARBONATE [Suspect]
     Indication: BIPOLAR DISORDER
     Route: 048
     Dates: start: 19670101, end: 20060124
  7. ROCEPHIN [Concomitant]
     Indication: CHOLECYSTITIS ACUTE
     Route: 042
     Dates: start: 20060122, end: 20060127
  8. FLAGYL [Concomitant]
     Indication: CHOLECYSTITIS ACUTE
     Route: 042
     Dates: start: 20060122, end: 20060127
  9. LIQUAEMIN INJ [Concomitant]
     Route: 058
     Dates: end: 20060124

REACTIONS (6)
  - CHOLECYSTITIS ACUTE [None]
  - DEPRESSED LEVEL OF CONSCIOUSNESS [None]
  - DIABETES INSIPIDUS [None]
  - DRUG INTERACTION [None]
  - HYPERNATRAEMIA [None]
  - PARKINSON'S DISEASE [None]
